FAERS Safety Report 20115397 (Version 2)
Quarter: 2021Q4

REPORT INFORMATION
  Report Type: Report from Study
  Country: DE (occurrence: None)
  Receive Date: 20211126
  Receipt Date: 20211129
  Transmission Date: 20220303
  Serious: Yes (Life-Threatening)
  Sender: FDA-Public Use
  Company Number: DE-ROCHE-2962382

PATIENT
  Age: 80 Year
  Sex: Female
  Weight: 62.3 kg

DRUGS (3)
  1. BENDAMUSTINE [Suspect]
     Active Substance: BENDAMUSTINE
     Indication: Chronic lymphocytic leukaemia
     Dosage: CYCLES 1-6: 90MG/M2, D1-2, Q28D?ON 31/MAY/2017,  RECEIVED LAST DOSE.
     Route: 042
     Dates: start: 20170105
  2. RITUXIMAB [Suspect]
     Active Substance: RITUXIMAB
     Indication: Chronic lymphocytic leukaemia
     Dosage: CYCLE 1: 375 MG/M2, D0; CYCLES 2-6: 500 MG/M2, D1; Q28D?ON 30/MAY/2017 RECEIVED LAST DOSE.
     Route: 041
     Dates: start: 20170105
  3. ALLOPURINOL [Concomitant]
     Active Substance: ALLOPURINOL

REACTIONS (2)
  - Metastatic squamous cell carcinoma [Not Recovered/Not Resolved]
  - Breast cancer [Not Recovered/Not Resolved]

NARRATIVE: CASE EVENT DATE: 20210824
